FAERS Safety Report 25088817 (Version 1)
Quarter: 2025Q1

REPORT INFORMATION
  Report Type: Spontaneous
  Country: US (occurrence: US)
  Receive Date: 20250318
  Receipt Date: 20250318
  Transmission Date: 20250409
  Serious: No
  Sender: AMGEN
  Company Number: US-AMGEN-USASP2025051757

PATIENT

DRUGS (2)
  1. KRYSTEXXA [Suspect]
     Active Substance: PEGLOTICASE
     Indication: Blood uric acid increased
     Dosage: UNK UNK, Q2WK (EVERY TWO WEEKS)
     Route: 040
     Dates: start: 20250115
  2. KRYSTEXXA [Suspect]
     Active Substance: PEGLOTICASE
     Dosage: UNK UNK, Q2WK (EVERY TWO WEEKS) (LAST INFUSION)
     Route: 040
     Dates: start: 20250303, end: 20250303

REACTIONS (2)
  - Blood uric acid increased [Not Recovered/Not Resolved]
  - Drug ineffective [Unknown]

NARRATIVE: CASE EVENT DATE: 20250101
